FAERS Safety Report 12402265 (Version 3)
Quarter: 2016Q2

REPORT INFORMATION
  Report Type: Report from Study
  Country: US (occurrence: US)
  Receive Date: 20160525
  Receipt Date: 20160623
  Transmission Date: 20160815
  Serious: Yes (Hospitalization, Other)
  Sender: FDA-Public Use
  Company Number: US-GILEAD-2016-0207333

PATIENT
  Age: 49 Year
  Sex: Female

DRUGS (11)
  1. PEPCID                             /00305201/ [Concomitant]
     Active Substance: ALUMINUM HYDROXIDE\MAGNESIUM CARBONATE
  2. COUMARIN [Concomitant]
     Active Substance: COUMARIN
  3. NASOCORT [Concomitant]
     Active Substance: BUDESONIDE
  4. AMBRISENTAN [Suspect]
     Active Substance: AMBRISENTAN
     Indication: CORONARY ARTERY DISEASE
     Dosage: 10 MG, QD
     Route: 048
  5. TIKOSYN [Concomitant]
     Active Substance: DOFETILIDE
  6. XOPENEX [Concomitant]
     Active Substance: LEVALBUTEROL HYDROCHLORIDE
  7. AMBIEN [Concomitant]
     Active Substance: ZOLPIDEM TARTRATE
  8. PAXIL [Concomitant]
     Active Substance: PAROXETINE HYDROCHLORIDE
  9. LASIX [Concomitant]
     Active Substance: FUROSEMIDE
  10. XANAX [Concomitant]
     Active Substance: ALPRAZOLAM
  11. SYNTHROID [Concomitant]
     Active Substance: LEVOTHYROXINE SODIUM

REACTIONS (6)
  - Pulmonary oedema [Recovered/Resolved]
  - Respiratory failure [Recovered/Resolved]
  - Atrial tachycardia [Recovered/Resolved]
  - Off label use [Not Recovered/Not Resolved]
  - Atrial tachycardia [Recovered/Resolved]
  - Pulmonary oedema [Recovered/Resolved]

NARRATIVE: CASE EVENT DATE: 20151104
